FAERS Safety Report 14350555 (Version 3)
Quarter: 2018Q3

REPORT INFORMATION
  Report Type: Spontaneous
  Country: US (occurrence: US)
  Receive Date: 20180104
  Receipt Date: 20180817
  Transmission Date: 20181010
  Serious: Yes (Death, Life-Threatening, Other)
  Sender: FDA-Public Use
  Company Number: US-PFIZER INC-2899998

PATIENT
  Age: 57 Year
  Sex: Female
  Weight: 108.6 kg

DRUGS (7)
  1. DEPO?MEDROL [Suspect]
     Active Substance: METHYLPREDNISOLONE ACETATE
     Indication: INFECTION
  2. CEFTRIAXONE SODIUM. [Suspect]
     Active Substance: CEFTRIAXONE SODIUM
     Indication: INFECTION
  3. LIDOCAINE HCL [Suspect]
     Active Substance: LIDOCAINE HYDROCHLORIDE
     Indication: INFECTION
  4. DEPO?MEDROL [Suspect]
     Active Substance: METHYLPREDNISOLONE ACETATE
     Indication: CHRONIC OBSTRUCTIVE PULMONARY DISEASE
     Dosage: 100 MG, ONCE
     Route: 030
     Dates: start: 20131105
  5. CEFTRIAXONE SODIUM. [Suspect]
     Active Substance: CEFTRIAXONE SODIUM
     Indication: CHRONIC OBSTRUCTIVE PULMONARY DISEASE
     Dosage: 1 G, FREQ: ONCE
     Route: 030
     Dates: start: 20131105
  6. LIDOCAINE HCL [Suspect]
     Active Substance: LIDOCAINE HYDROCHLORIDE
     Indication: MEDICATION DILUTION
     Dosage: FREQ: ONCE
     Route: 030
     Dates: start: 20131105
  7. CYANOCOBALAMIN. [Concomitant]
     Active Substance: CYANOCOBALAMIN
     Indication: FATIGUE
     Dosage: 1000 MG, UNK
     Route: 030

REACTIONS (8)
  - Generalised oedema [Fatal]
  - Chest pain [Fatal]
  - Respiratory tract oedema [Fatal]
  - Dyspnoea [Fatal]
  - Hypersensitivity [Fatal]
  - Obstructive airways disorder [Fatal]
  - Anaphylactic reaction [Fatal]
  - Respiratory rate increased [Fatal]

NARRATIVE: CASE EVENT DATE: 20131105
